FAERS Safety Report 25263033 (Version 1)
Quarter: 2025Q2

REPORT INFORMATION
  Report Type: Spontaneous
  Country: US (occurrence: None)
  Receive Date: 20250501
  Receipt Date: 20250501
  Transmission Date: 20250716
  Serious: Yes (Hospitalization)
  Sender: FDA-CTU
  Company Number: None

PATIENT
  Age: 77 Year
  Sex: Male
  Weight: 91 kg

DRUGS (4)
  1. ACETAMINOPHEN\HYDROCODONE [Suspect]
     Active Substance: ACETAMINOPHEN\HYDROCODONE
     Indication: Pain
     Route: 048
     Dates: start: 20250306, end: 20250312
  2. PREGABALIN [Suspect]
     Active Substance: PREGABALIN
  3. PREDNISONE [Suspect]
     Active Substance: PREDNISONE
  4. TIZANIDINE [Suspect]
     Active Substance: TIZANIDINE

REACTIONS (6)
  - Bradycardia [None]
  - Hypotension [None]
  - Back pain [None]
  - Asthenia [None]
  - Somnolence [None]
  - Cellulitis [None]

NARRATIVE: CASE EVENT DATE: 20250312
